FAERS Safety Report 7403331-6 (Version None)
Quarter: 2011Q1

REPORT INFORMATION
  Report Type: 
  Country: None (occurrence: None)
  Receive Date: 20110331
  Receipt Date: 20110322
  Transmission Date: 20110831
  Serious: Yes (Death, Life-Threatening, Hospitalization, Other)
  Sender: FDA-Public Use
  Company Number: 2007-02507

PATIENT
  Age: 64 Year
  Sex: Male
  Weight: 63 kg

DRUGS (33)
  1. SODIUM BICARBONATE [Concomitant]
  2. BIOFERMIN (STREPTOCOCCUS FAECALIS, LACTOBACILLUS ACIDOPHILUS, BACILLUS [Concomitant]
  3. DIFLUCAN [Concomitant]
  4. PHELLOBERIN A (CLIOQUINOL, BERBERINE HYDROCHLORIDE, CARMELLOSE SODIUM) [Concomitant]
  5. VOLTAREN [Concomitant]
  6. ALDACTONE [Concomitant]
  7. MAGNESIUM OXIDE (MAGNESIUM OXIDE) [Concomitant]
  8. GASTER (FAMOTIDE) [Concomitant]
  9. URSO 250 [Concomitant]
  10. NORVASC [Concomitant]
  11. NEUTROGIN (LENOGRASTIM) [Concomitant]
  12. FAMOTIDINE [Concomitant]
  13. GABAPENTIN [Concomitant]
  14. GASMOTIN (MOSAPRIDE CITRATE) [Concomitant]
  15. URSO 250 [Concomitant]
  16. ALDACTONE [Concomitant]
  17. ALOSENN (TARAXACUM OFFICINALE, ACHILLEA, SENNA LEAF, RUBIA ROOT TINCTU [Concomitant]
  18. VELCADE [Suspect]
     Indication: MULTIPLE MYELOMA
     Dosage: 1.9 MG, INTRAVENOUS
     Route: 042
     Dates: start: 20070601, end: 20070820
  19. ALDACTONE [Concomitant]
  20. NEUPOGEN [Concomitant]
  21. ALBUMIN TANNATE (ALBUMIN TANNATE) [Concomitant]
  22. ALENDRONATE SODIUM [Concomitant]
  23. LEVOFLOXACIN [Concomitant]
  24. PHELLOBERIN A (CLIOQUNOL, BERBERINE HYDROCHLORIDE, CARMELLOSE SODIUM) [Concomitant]
  25. LASIX [Suspect]
     Indication: GENERALISED OEDEMA
     Dosage: 40 MG, ORAL
     Route: 048
     Dates: start: 20070605, end: 20070628
  26. KYTRIL [Concomitant]
  27. NORVASC [Concomitant]
  28. ALDACTONE [Concomitant]
  29. DEXAMETHASONE (DEXAMETHASONE) [Concomitant]
  30. NORVASC [Concomitant]
  31. ALBUMIN TANNATE (ALBUMIN TANNATE) [Concomitant]
  32. NEUTROGIN (LENOGRASTIM) [Concomitant]
  33. GABAPENTIN [Concomitant]

REACTIONS (15)
  - RENAL IMPAIRMENT [None]
  - MULTIPLE MYELOMA [None]
  - ASCITES [None]
  - PLEURAL EFFUSION [None]
  - ANAEMIA [None]
  - PHARYNGITIS [None]
  - BLOOD ALKALINE PHOSPHATASE INCREASED [None]
  - CHOLECYSTITIS CHRONIC [None]
  - DIARRHOEA [None]
  - INFLUENZA [None]
  - LEUKOPENIA [None]
  - HYPERCALCAEMIA [None]
  - BLOOD CREATININE INCREASED [None]
  - PLATELET COUNT DECREASED [None]
  - HEPATIC ENZYME INCREASED [None]
